FAERS Safety Report 25652042 (Version 1)
Quarter: 2025Q3

REPORT INFORMATION
  Report Type: Spontaneous
  Country: CN (occurrence: CN)
  Receive Date: 20250806
  Receipt Date: 20250806
  Transmission Date: 20251020
  Serious: Yes (Hospitalization)
  Sender: BEIGENE
  Company Number: CN-BEIGENE-BGN-2025-012694

PATIENT
  Age: 64 Year
  Weight: 65 kg

DRUGS (20)
  1. TISLELIZUMAB [Suspect]
     Active Substance: TISLELIZUMAB
     Indication: Colon cancer
     Dosage: 200 MILLIGRAM, Q3WK, D1
  2. TISLELIZUMAB [Suspect]
     Active Substance: TISLELIZUMAB
     Dosage: 200 MILLIGRAM, Q3WK, D1
     Route: 041
  3. TISLELIZUMAB [Suspect]
     Active Substance: TISLELIZUMAB
     Dosage: 200 MILLIGRAM, Q3WK, D1
     Route: 041
  4. TISLELIZUMAB [Suspect]
     Active Substance: TISLELIZUMAB
     Dosage: 200 MILLIGRAM, Q3WK, D1
  5. CARBOPLATIN [Suspect]
     Active Substance: CARBOPLATIN
     Indication: Colon cancer
     Dosage: 450 MILLIGRAM, Q3WK, D1
  6. CARBOPLATIN [Suspect]
     Active Substance: CARBOPLATIN
     Dosage: 450 MILLIGRAM, Q3WK, D1
     Route: 041
  7. CARBOPLATIN [Suspect]
     Active Substance: CARBOPLATIN
     Dosage: 450 MILLIGRAM, Q3WK, D1
     Route: 041
  8. CARBOPLATIN [Suspect]
     Active Substance: CARBOPLATIN
     Dosage: 450 MILLIGRAM, Q3WK, D1
  9. GEMCITABINE HYDROCHLORIDE [Suspect]
     Active Substance: GEMCITABINE HYDROCHLORIDE
     Indication: Colon cancer
     Dosage: 1.4 GRAM, Q3WK, D1-D8
  10. GEMCITABINE HYDROCHLORIDE [Suspect]
     Active Substance: GEMCITABINE HYDROCHLORIDE
     Dosage: 1.4 GRAM, Q3WK, D1-D8
     Route: 041
  11. GEMCITABINE HYDROCHLORIDE [Suspect]
     Active Substance: GEMCITABINE HYDROCHLORIDE
     Dosage: 1.4 GRAM, Q3WK, D1-D8
     Route: 041
  12. GEMCITABINE HYDROCHLORIDE [Suspect]
     Active Substance: GEMCITABINE HYDROCHLORIDE
     Dosage: 1.4 GRAM, Q3WK, D1-D8
  13. SODIUM CHLORIDE [Concomitant]
     Active Substance: SODIUM CHLORIDE
     Indication: Vehicle solution use
  14. SODIUM CHLORIDE [Concomitant]
     Active Substance: SODIUM CHLORIDE
     Route: 041
  15. SODIUM CHLORIDE [Concomitant]
     Active Substance: SODIUM CHLORIDE
     Route: 041
  16. SODIUM CHLORIDE [Concomitant]
     Active Substance: SODIUM CHLORIDE
  17. DEXTROSE [Concomitant]
     Active Substance: DEXTROSE MONOHYDRATE
     Indication: Vehicle solution use
  18. DEXTROSE [Concomitant]
     Active Substance: DEXTROSE MONOHYDRATE
     Route: 041
  19. DEXTROSE [Concomitant]
     Active Substance: DEXTROSE MONOHYDRATE
     Route: 041
  20. DEXTROSE [Concomitant]
     Active Substance: DEXTROSE MONOHYDRATE

REACTIONS (1)
  - Myelosuppression [Recovering/Resolving]
